FAERS Safety Report 21928388 (Version 1)
Quarter: 2023Q1

REPORT INFORMATION
  Report Type: Spontaneous
  Country: US (occurrence: US)
  Receive Date: 20230130
  Receipt Date: 20230130
  Transmission Date: 20230417
  Serious: Yes (Other)
  Sender: FDA-Public Use
  Company Number: US-JNJFOC-20230142774

PATIENT
  Sex: Female

DRUGS (2)
  1. BALVERSA [Suspect]
     Active Substance: ERDAFITINIB
     Indication: Bladder cancer
     Route: 065
  2. BALVERSA [Suspect]
     Active Substance: ERDAFITINIB
     Route: 065
     Dates: start: 202210

REACTIONS (3)
  - Detachment of retinal pigment epithelium [Not Recovered/Not Resolved]
  - Adverse drug reaction [Unknown]
  - Malaise [Unknown]
